FAERS Safety Report 4738139-3 (Version None)
Quarter: 2005Q3

REPORT INFORMATION
  Report Type: 
  Country: None (occurrence: None)
  Receive Date: 20050809
  Receipt Date: 20050715
  Transmission Date: 20060218
  Serious: Yes (Hospitalization)
  Sender: FDA-Public Use
  Company Number: US-ROCHE-411062

PATIENT
  Sex: Female
  Weight: 51.3 kg

DRUGS (5)
  1. PEGASYS [Suspect]
     Indication: HEPATITIS C
     Route: 058
     Dates: start: 20050429, end: 20050430
  2. COPEGUS [Suspect]
     Indication: HEPATITIS C
     Route: 048
     Dates: start: 20050429, end: 20050430
  3. PLAQUENIL [Concomitant]
     Indication: PERICARDITIS
     Route: 048
  4. ANTIHYPERTENSIVE AGENTS NOS [Concomitant]
     Indication: HYPERTENSION
     Route: 048
  5. VITAMINS NOS [Concomitant]
     Route: 048

REACTIONS (3)
  - INSOMNIA [None]
  - PERICARDITIS [None]
  - PLEURISY [None]
